FAERS Safety Report 17649131 (Version 1)
Quarter: 2020Q2

REPORT INFORMATION
  Report Type: Report from Study
  Country: GB (occurrence: GB)
  Receive Date: 20200409
  Receipt Date: 20200409
  Transmission Date: 20200713
  Serious: Yes (Hospitalization, Other)
  Sender: FDA-Public Use
  Company Number: NVSC2020GB094681

PATIENT
  Sex: Female

DRUGS (1)
  1. HYRIMOZ [Suspect]
     Active Substance: ADALIMUMAB-ADAZ
     Indication: PSORIATIC ARTHROPATHY
     Dosage: UNK (EOW, AS DIRECTED)
     Route: 065

REACTIONS (4)
  - Pneumonia [Unknown]
  - Product dose omission [Unknown]
  - Ill-defined disorder [Unknown]
  - Malaise [Unknown]
